FAERS Safety Report 5283687-3 (Version None)
Quarter: 2007Q2

REPORT INFORMATION
  Report Type: 
  Country: None (occurrence: None)
  Receive Date: 20070402
  Receipt Date: 20070326
  Transmission Date: 20071010
  Serious: Yes (Other)
  Sender: FDA-Public Use
  Company Number: CO-SANOFI-SYNTHELABO-A01200703244

PATIENT
  Sex: Female

DRUGS (2)
  1. ELOXATIN [Suspect]
     Indication: COLORECTAL CANCER
     Dosage: UNK
     Route: 042
     Dates: start: 20070323, end: 20070323
  2. ELOXATIN [Suspect]
     Dosage: UNK
     Route: 042
     Dates: start: 20070323, end: 20070323

REACTIONS (4)
  - COUGH [None]
  - LARYNGOSPASM [None]
  - ORAL DISCOMFORT [None]
  - PRURITUS [None]
